FAERS Safety Report 22369117 (Version 1)
Quarter: 2023Q2

REPORT INFORMATION
  Report Type: Spontaneous
  Country: HR (occurrence: HR)
  Receive Date: 20230525
  Receipt Date: 20230525
  Transmission Date: 20230722
  Serious: Yes (Hospitalization, Other)
  Sender: FDA-Public Use
  Company Number: HR-BRISTOL-MYERS SQUIBB COMPANY-2022-149221

PATIENT
  Age: 68 Year
  Sex: Male

DRUGS (1)
  1. NIVOLUMAB [Suspect]
     Active Substance: NIVOLUMAB
     Indication: Metastatic renal cell carcinoma

REACTIONS (6)
  - Immune-mediated renal disorder [Recovering/Resolving]
  - Immune-mediated hepatitis [Recovering/Resolving]
  - Immune-mediated hypothyroidism [Not Recovered/Not Resolved]
  - Immune-mediated myositis [Unknown]
  - Vitiligo [Not Recovered/Not Resolved]
  - Off label use [Unknown]
